FAERS Safety Report 7029831-9 (Version None)
Quarter: 2010Q4

REPORT INFORMATION
  Report Type: 
  Country: None (occurrence: None)
  Receive Date: 20101006
  Receipt Date: 20100928
  Transmission Date: 20110411
  Serious: Yes (Hospitalization)
  Sender: FDA-Public Use
  Company Number: US-BIOGENIDEC-2010BI027146

PATIENT
  Age: 53 Year
  Sex: Female

DRUGS (4)
  1. AVONEX [Suspect]
     Indication: MULTIPLE SCLEROSIS
     Route: 030
     Dates: start: 20070901
  2. PEVISEC [PRESUMED PRILOSEC] [Concomitant]
     Route: 048
  3. SIMVASTATIN [Concomitant]
  4. LORTAB [Concomitant]

REACTIONS (2)
  - PERIPHERAL VASCULAR DISORDER [None]
  - SKIN ULCER [None]
